FAERS Safety Report 16957688 (Version 1)
Quarter: 2019Q4

REPORT INFORMATION
  Report Type: Spontaneous
  Country: DK (occurrence: DK)
  Receive Date: 20191024
  Receipt Date: 20191024
  Transmission Date: 20200122
  Serious: Yes (Other)
  Sender: FDA-Public Use
  Company Number: DK-EMD SERONO-E2B_90071604

PATIENT
  Age: 29 Year
  Sex: Female

DRUGS (4)
  1. BRENTACORT [Concomitant]
     Indication: ECZEMA INFECTED
     Dosage: STRENGTH: 20+10 MG/ML
     Route: 003
     Dates: start: 20180115, end: 20180926
  2. MAVENCLAD [Suspect]
     Active Substance: CLADRIBINE
     Dosage: SECOND WEEK THERAPY: 20 MG ON DAY 1, AND 10 MG ON DAYS 2 TO 5.
     Route: 048
  3. ANASTRELLA [Concomitant]
     Indication: CONTRACEPTION
     Dosage: STRENGTH: 150+30 MICROGRAM
     Route: 048
     Dates: start: 20170425
  4. MAVENCLAD [Suspect]
     Active Substance: CLADRIBINE
     Indication: MULTIPLE SCLEROSIS
     Dosage: FIRST WEEK THERAPY: 20 MG ON DAY 1, AND 10 MG ON DAYS 2 TO 5.
     Route: 048
     Dates: start: 20190624

REACTIONS (2)
  - Hypothyroidism [Not Recovered/Not Resolved]
  - Hyperthyroidism [Recovered/Resolved]

NARRATIVE: CASE EVENT DATE: 2019
